FAERS Safety Report 4582914-5 (Version None)
Quarter: 2005Q1

REPORT INFORMATION
  Report Type: 
  Country: None (occurrence: None)
  Receive Date: 20050127
  Receipt Date: 20040914
  Transmission Date: 20050727
  Serious: No
  Sender: FDA-Public Use
  Company Number: USA040978283

PATIENT
  Age: 14 Year
  Sex: Male
  Weight: 49 kg

DRUGS (2)
  1. STRATTERA [Suspect]
     Dosage: 18 MG/1 IN THE MORNING
     Dates: start: 20040601
  2. RITALIN [Concomitant]

REACTIONS (1)
  - ALOPECIA [None]
